FAERS Safety Report 20110983 (Version 1)
Quarter: 2021Q4

REPORT INFORMATION
  Report Type: Spontaneous
  Country: IT (occurrence: IT)
  Receive Date: 20211124
  Receipt Date: 20211124
  Transmission Date: 20220303
  Serious: Yes (Other)
  Sender: FDA-Public Use
  Company Number: IT-MINISAL02-808532

PATIENT
  Age: 38 Year
  Sex: Male
  Weight: 107 kg

DRUGS (2)
  1. MEROPENEM [Suspect]
     Active Substance: MEROPENEM
     Indication: Pneumonia
     Dosage: UNK
     Route: 042
     Dates: start: 20211025, end: 20211029
  2. VANCOMYCIN [Concomitant]
     Active Substance: VANCOMYCIN
     Indication: Groin infection
     Dosage: UNK
     Dates: start: 20211025, end: 20211108

REACTIONS (4)
  - Dyspnoea [Recovered/Resolved]
  - Malaise [Recovered/Resolved]
  - Pruritus [Recovered/Resolved]
  - Swelling [Recovered/Resolved]

NARRATIVE: CASE EVENT DATE: 20211029
